FAERS Safety Report 9499819 (Version 1)
Quarter: 2013Q1

REPORT INFORMATION
  Report Type: Spontaneous
  Country: US (occurrence: None)
  Receive Date: 20130118
  Receipt Date: 20130118
  Transmission Date: 20140127
  Serious: No
  Sender: FDA-Public Use
  Company Number: A-US2012-59771

PATIENT
  Age: 36 Year
  Sex: Female

DRUGS (3)
  1. TRACLEER [Suspect]
     Indication: PULMONARY ARTERIAL HYPERTENSION
     Route: 048
     Dates: start: 20100726
  2. REMODULIN (TREPROSTINIL SODIUM) [Concomitant]
  3. ASPIRIN (ACETYLSALICYCLIC ACID) [Concomitant]

REACTIONS (5)
  - Fluid retention [None]
  - Injection site pain [None]
  - Injection site swelling [None]
  - Hypotension [None]
  - Dizziness [None]
